FAERS Safety Report 4715294-2 (Version None)
Quarter: 2005Q3

REPORT INFORMATION
  Report Type: 
  Country: None (occurrence: None)
  Receive Date: 20050715
  Receipt Date: 20040924
  Transmission Date: 20060218
  Serious: Yes (Hospitalization, Other)
  Sender: FDA-Public Use
  Company Number: 200417317US

PATIENT
  Sex: Male
  Weight: 74 kg

DRUGS (3)
  1. DOCETAXEL [Suspect]
     Indication: PROSTATE CANCER METASTATIC
     Route: 042
     Dates: start: 20040809, end: 20040916
  2. DIGOXIN [Concomitant]
  3. TENORMIN [Concomitant]

REACTIONS (9)
  - ATRIAL FIBRILLATION [None]
  - CHEST DISCOMFORT [None]
  - DRUG TOXICITY [None]
  - DYSPNOEA EXERTIONAL [None]
  - HYPOCALCAEMIA [None]
  - HYPOKALAEMIA [None]
  - HYPOTENSION [None]
  - PALPITATIONS [None]
  - PROTHROMBIN TIME PROLONGED [None]
